FAERS Safety Report 7474202-4 (Version None)
Quarter: 2011Q2

REPORT INFORMATION
  Report Type: 
  Country: None (occurrence: None)
  Receive Date: 20110511
  Receipt Date: 20110427
  Transmission Date: 20111010
  Serious: Yes (Hospitalization, Other)
  Sender: FDA-Public Use
  Company Number: ES-ELI_LILLY_AND_COMPANY-ES201104007687

PATIENT
  Sex: Female
  Weight: 50 kg

DRUGS (3)
  1. NEXIUM [Concomitant]
     Indication: PROPHYLAXIS
     Dosage: UNK
     Route: 048
  2. FORTEO [Suspect]
     Indication: OSTEOPOROSIS
     Dosage: 20 UG, QD
     Route: 058
     Dates: start: 20090401, end: 20110401
  3. ACETAMINOPHEN [Concomitant]
     Indication: PAIN
     Dosage: 1 G, TID
     Route: 048

REACTIONS (1)
  - HIP FRACTURE [None]
